FAERS Safety Report 9782400 (Version 2)
Quarter: 2013Q4

REPORT INFORMATION
  Report Type: Spontaneous
  Country: US (occurrence: US)
  Receive Date: 20131226
  Receipt Date: 20131226
  Transmission Date: 20140711
  Serious: Yes (Other)
  Sender: FDA-Public Use
  Company Number: PHEH2013US022349

PATIENT
  Sex: Male
  Weight: 116.1 kg

DRUGS (5)
  1. DIOVAN HCT [Suspect]
     Dosage: 1 DF, QD (160 MG VALS/25 MG HYDR)
     Route: 048
  2. CLONAZEPAM [Concomitant]
  3. CEFTIN//CEFUROXIME AXETIL [Concomitant]
     Dosage: 1 DF, EVERY 12 HOURS
     Route: 048
  4. FEXOFENADINE [Concomitant]
     Indication: NASAL CONGESTION
     Dosage: 1 DF, TWICE A DAY PRN (60-120 MG)
  5. PROMETHAZINE [Concomitant]
     Indication: COUGH
     Dosage: 6.25-15 MG/5 ML, AS NEEDED EVERY 6 HOURS PRN

REACTIONS (7)
  - Coeliac disease [Unknown]
  - Food allergy [Unknown]
  - Drug intolerance [Unknown]
  - Hypersensitivity [Unknown]
  - Drug hypersensitivity [Unknown]
  - Rash [Unknown]
  - Hypertension [Unknown]
